FAERS Safety Report 5865580-8 (Version None)
Quarter: 2008Q3

REPORT INFORMATION
  Report Type: 
  Country: None (occurrence: None)
  Receive Date: 20080829
  Receipt Date: 20080812
  Transmission Date: 20090109
  Serious: No
  Sender: FDA-Public Use
  Company Number: US-ABBOTT-08P-163-0470171-00

PATIENT
  Sex: Male

DRUGS (2)
  1. SIMCOR [Suspect]
     Indication: BLOOD CHOLESTEROL INCREASED
     Dosage: 500MG/20MG DAILY
     Route: 048
     Dates: start: 20080623, end: 20080701
  2. SIMCOR [Suspect]
     Dosage: 500MG/20MG BID
     Route: 048
     Dates: start: 20080701, end: 20080807

REACTIONS (3)
  - BLOOD CREATINE PHOSPHOKINASE INCREASED [None]
  - MUSCLE TWITCHING [None]
  - MYALGIA [None]
